FAERS Safety Report 9764467 (Version 1)
Quarter: 2013Q4

REPORT INFORMATION
  Report Type: Spontaneous
  Country: US (occurrence: US)
  Receive Date: 20131217
  Receipt Date: 20131217
  Transmission Date: 20140711
  Serious: No
  Sender: FDA-Public Use
  Company Number: US-BIOGENIDEC-2013BI119401

PATIENT
  Sex: Female

DRUGS (4)
  1. AVONEX [Suspect]
     Indication: MULTIPLE SCLEROSIS
     Route: 030
  2. AVONEX [Suspect]
     Indication: MULTIPLE SCLEROSIS
     Route: 030
     Dates: start: 20031201
  3. AVONEX [Suspect]
     Indication: MULTIPLE SCLEROSIS
     Route: 030
     Dates: start: 20031212
  4. SYNTRHOID [Concomitant]

REACTIONS (9)
  - Migraine [Not Recovered/Not Resolved]
  - Hypoaesthesia [Not Recovered/Not Resolved]
  - Photopsia [Not Recovered/Not Resolved]
  - Optic neuritis [Unknown]
  - Multiple sclerosis relapse [Recovered/Resolved]
  - Influenza like illness [Recovered/Resolved]
  - Muscle spasticity [Not Recovered/Not Resolved]
  - Muscle tightness [Not Recovered/Not Resolved]
  - Headache [Not Recovered/Not Resolved]
